FAERS Safety Report 10231952 (Version 3)
Quarter: 2014Q3

REPORT INFORMATION
  Report Type: Spontaneous
  Country: US (occurrence: US)
  Receive Date: 20140612
  Receipt Date: 20140805
  Transmission Date: 20150326
  Serious: Yes (Hospitalization)
  Sender: FDA-Public Use
  Company Number: US-BIOGENIDEC-2014BI054113

PATIENT
  Age: 67 Year
  Sex: Female

DRUGS (1)
  1. TECFIDERA [Suspect]
     Active Substance: DIMETHYL FUMARATE
     Indication: MULTIPLE SCLEROSIS
     Dates: start: 20140508

REACTIONS (4)
  - Accident [Recovered/Resolved]
  - Wound [Recovered/Resolved]
  - Intervertebral disc displacement [Not Recovered/Not Resolved]
  - Skull fracture [Not Recovered/Not Resolved]

NARRATIVE: CASE EVENT DATE: 201405
